FAERS Safety Report 4325621-6 (Version None)
Quarter: 2004Q1

REPORT INFORMATION
  Report Type: 
  Country: None (occurrence: None)
  Receive Date: 20040324
  Receipt Date: 20040310
  Transmission Date: 20041129
  Serious: Yes (Disabling)
  Sender: FDA-Public Use
  Company Number: A201892

PATIENT
  Age: 48 Year
  Sex: Female
  Weight: 90.7194 kg

DRUGS (7)
  1. ZITHROMAX [Suspect]
     Indication: PHARYNGITIS
     Dosage: DAILY, ORAL
     Route: 048
     Dates: start: 20011101, end: 20011101
  2. ZITHROMAX [Suspect]
     Indication: SINUSITIS
     Dosage: DAILY, ORAL
     Route: 048
     Dates: start: 20011101, end: 20011101
  3. MOMETASONE FUROATE [Concomitant]
  4. LORATADINE [Concomitant]
  5. FEXOFENADINE HYDROCHLORIDE [Concomitant]
  6. ALLEGRA-D (PSEUDOEPHEDRINE HYDROCHLORIDE, FEXOFENADINE) [Concomitant]
  7. CLARINASE (PSEUDOEPHEDRINE, LORATADINE) [Concomitant]

REACTIONS (32)
  - ABDOMINAL DISTENSION [None]
  - ABDOMINAL PAIN [None]
  - ABDOMINAL TENDERNESS [None]
  - ASTHENIA [None]
  - BACK PAIN [None]
  - BLOOD CHOLESTEROL INCREASED [None]
  - COUGH [None]
  - DIARRHOEA [None]
  - FEAR [None]
  - FLATULENCE [None]
  - GASTRITIS [None]
  - GASTROINTESTINAL DISORDER [None]
  - GASTROOESOPHAGEAL REFLUX DISEASE [None]
  - HEADACHE [None]
  - HOARSENESS [None]
  - IMPAIRED WORK ABILITY [None]
  - INFLAMMATION [None]
  - INTERVERTEBRAL DISC DISORDER [None]
  - JOINT RANGE OF MOTION DECREASED [None]
  - LARYNGEAL OEDEMA [None]
  - LOOSE STOOLS [None]
  - LOW DENSITY LIPOPROTEIN INCREASED [None]
  - NASAL SEPTUM DEVIATION [None]
  - NASAL SINUS DRAINAGE [None]
  - NASAL TURBINATE HYPERTROPHY [None]
  - PHARYNGITIS [None]
  - PHARYNGOLARYNGEAL PAIN [None]
  - RHINITIS ALLERGIC [None]
  - SPINAL DISORDER [None]
  - TENDERNESS [None]
  - TINNITUS [None]
  - WEIGHT INCREASED [None]
